FAERS Safety Report 9146535 (Version 1)
Quarter: 2013Q1

REPORT INFORMATION
  Report Type: Spontaneous
  Country: US (occurrence: US)
  Receive Date: 20130307
  Receipt Date: 20130307
  Transmission Date: 20140127
  Serious: No
  Sender: FDA-Public Use
  Company Number: US-GLAXOSMITHKLINE-A0997852A

PATIENT
  Age: 52 Year
  Sex: Female

DRUGS (6)
  1. ROPINIROLE [Suspect]
     Indication: RESTLESS LEGS SYNDROME
     Dosage: 2MG TWICE PER DAY
     Route: 048
  2. TEGRETOL XR [Concomitant]
  3. TOPAMAX [Concomitant]
  4. ATIVAN [Concomitant]
  5. SEROQUEL [Concomitant]
  6. RANITIDINE [Concomitant]

REACTIONS (3)
  - Nausea [Unknown]
  - Abdominal pain upper [Unknown]
  - Drug ineffective [Unknown]
